FAERS Safety Report 6780911-2 (Version None)
Quarter: 2010Q2

REPORT INFORMATION
  Report Type: 
  Country: None (occurrence: None)
  Receive Date: 20100621
  Receipt Date: 20100615
  Transmission Date: 20101027
  Serious: Yes (Hospitalization, Other)
  Sender: FDA-Public Use
  Company Number: US-ELI_LILLY_AND_COMPANY-US201006004023

PATIENT
  Sex: Female

DRUGS (5)
  1. HUMALOG [Suspect]
     Dosage: 10 U, OTHER
     Dates: start: 20000615
  2. HUMALOG [Suspect]
     Dosage: UNK, AS NEEDED
     Dates: start: 20000615
  3. HUMULIN N [Suspect]
     Dosage: 30 U, EACH MORNING
  4. HUMULIN N [Suspect]
     Dosage: 5 U, EACH EVENING
  5. HUMULIN R [Suspect]

REACTIONS (7)
  - ABDOMINAL DISCOMFORT [None]
  - DEHYDRATION [None]
  - DIARRHOEA [None]
  - PANCREAS TRANSPLANT REJECTION [None]
  - POOR QUALITY DRUG ADMINISTERED [None]
  - RENAL AND PANCREAS TRANSPLANT [None]
  - VOMITING [None]
